FAERS Safety Report 24753457 (Version 1)
Quarter: 2024Q4

REPORT INFORMATION
  Report Type: Spontaneous
  Country: ES (occurrence: ES)
  Receive Date: 20241219
  Receipt Date: 20241219
  Transmission Date: 20250115
  Serious: Yes (Other)
  Sender: MYLAN
  Company Number: ES-MYLANLABS-2024M1112239

PATIENT
  Sex: Male

DRUGS (1)
  1. CIDOFOVIR [Suspect]
     Active Substance: CIDOFOVIR
     Indication: Respiratory papilloma
     Dosage: UNK
     Route: 026

REACTIONS (1)
  - Drug ineffective [Unknown]
